FAERS Safety Report 8454747-0 (Version None)
Quarter: 2012Q2

REPORT INFORMATION
  Report Type: 
  Country: None (occurrence: None)
  Receive Date: 20120621
  Receipt Date: 20120611
  Transmission Date: 20120825
  Serious: Yes (Other)
  Sender: FDA-Public Use
  Company Number: CA-JNJFOC-20120605993

PATIENT
  Sex: Female
  Weight: 71 kg

DRUGS (11)
  1. VITAMIN D [Concomitant]
     Route: 065
  2. VITAMIN B-12 [Concomitant]
     Route: 065
  3. PRISTIQ [Concomitant]
     Route: 065
  4. ZANTAC [Concomitant]
     Route: 065
  5. MS CONTIN [Concomitant]
     Route: 065
  6. ALL OTHER THERAPEUTICS [Concomitant]
     Route: 065
  7. NEXIUM [Concomitant]
     Route: 065
  8. ACIDOPHILUS [Concomitant]
     Route: 065
  9. MAXERAN [Concomitant]
     Route: 065
  10. REMICADE [Suspect]
     Indication: CROHN'S DISEASE
     Route: 042
     Dates: start: 20120611
  11. REMICADE [Suspect]
     Route: 042
     Dates: start: 20120301

REACTIONS (7)
  - DIZZINESS [None]
  - ERYTHEMA [None]
  - PHARYNGEAL OEDEMA [None]
  - DYSPNOEA [None]
  - ADVERSE DRUG REACTION [None]
  - INFUSION RELATED REACTION [None]
  - OXYGEN SATURATION DECREASED [None]
